FAERS Safety Report 10260206 (Version 2)
Quarter: 2014Q2

REPORT INFORMATION
  Report Type: Spontaneous
  Country: US (occurrence: US)
  Receive Date: 20140625
  Receipt Date: 20140625
  Transmission Date: 20141212
  Serious: No
  Sender: FDA-Public Use
  Company Number: US-SANOFI-AVENTIS-2013SA023813

PATIENT
  Age: 17 Year
  Sex: Female

DRUGS (1)
  1. AUBAGIO [Suspect]
     Indication: MULTIPLE SCLEROSIS
     Route: 048
     Dates: start: 20121108

REACTIONS (4)
  - Alopecia [Recovered/Resolved]
  - Paraesthesia [Recovered/Resolved]
  - Weight decreased [Unknown]
  - Decreased appetite [Unknown]
